FAERS Safety Report 7898616-3 (Version None)
Quarter: 2011Q4

REPORT INFORMATION
  Report Type: 
  Country: None (occurrence: None)
  Receive Date: 20111107
  Receipt Date: 20111107
  Transmission Date: 20120403
  Serious: Yes (Other)
  Sender: FDA-Public Use
  Company Number: None

PATIENT
  Sex: Female
  Weight: 50.802 kg

DRUGS (3)
  1. LOESTRIN 24 FE [Suspect]
     Indication: MENSTRUATION IRREGULAR
     Dosage: 1
     Route: 048
     Dates: start: 20111018, end: 20111030
  2. SOLODYN [Concomitant]
  3. LOESTRIN FE 1/20 [Concomitant]

REACTIONS (4)
  - ILL-DEFINED DISORDER [None]
  - CHROMATURIA [None]
  - CONTUSION [None]
  - ABNORMAL BEHAVIOUR [None]
